FAERS Safety Report 5368603-8 (Version None)
Quarter: 2007Q2

REPORT INFORMATION
  Report Type: 
  Country: None (occurrence: None)
  Receive Date: 20070625
  Receipt Date: 20070612
  Transmission Date: 20071010
  Serious: Yes (Other)
  Sender: FDA-Public Use
  Company Number: US-JNJFOC-20070603506

PATIENT
  Age: 15 Year
  Sex: Male
  Weight: 151 kg

DRUGS (6)
  1. TOPAMAX [Suspect]
     Route: 048
  2. TOPAMAX [Suspect]
     Route: 048
  3. TOPAMAX [Suspect]
     Indication: EPILEPSY
     Route: 048
  4. PROGRAF [Concomitant]
  5. VALIUM [Concomitant]
  6. MAGNESIUM CHLORIDE [Concomitant]

REACTIONS (1)
  - HEPATIC ENZYME INCREASED [None]
